FAERS Safety Report 12858384 (Version 1)
Quarter: 2016Q4

REPORT INFORMATION
  Report Type: Spontaneous
  Country: US (occurrence: US)
  Receive Date: 20161018
  Receipt Date: 20161018
  Transmission Date: 20170207
  Serious: No
  Sender: FDA-Public Use
  Company Number: US-PERRIGO-16US017861

PATIENT
  Age: 45 Year
  Sex: Female
  Weight: 61.22 kg

DRUGS (1)
  1. NICOTINE POLACRILEX [Suspect]
     Active Substance: NICOTINE
     Indication: SMOKING CESSATION THERAPY
     Dosage: 2 MG, TID
     Route: 002
     Dates: start: 201606, end: 20160629

REACTIONS (4)
  - Tinnitus [Recovered/Resolved]
  - Feeling jittery [Recovered/Resolved]
  - Headache [Recovered/Resolved]
  - Dizziness [Recovered/Resolved]

NARRATIVE: CASE EVENT DATE: 20160613
